FAERS Safety Report 6301406-6 (Version None)
Quarter: 2009Q3

REPORT INFORMATION
  Report Type: 
  Country: None (occurrence: None)
  Receive Date: 20090807
  Receipt Date: 20090727
  Transmission Date: 20100115
  Serious: Yes (Hospitalization)
  Sender: FDA-Public Use
  Company Number: JP-PFIZER INC-2009250543

PATIENT
  Age: 82 Year

DRUGS (2)
  1. LIPITOR [Suspect]
     Indication: HYPERCHOLESTEROLAEMIA
     Dosage: 10 MG, UNKNOWN/D
     Route: 048
     Dates: start: 20090627, end: 20090718
  2. FUROSEMIDE [Suspect]
     Dosage: UNK
     Route: 048
     Dates: end: 20090718

REACTIONS (6)
  - ASTHENIA [None]
  - BLOOD CREATINE PHOSPHOKINASE INCREASED [None]
  - BLOOD POTASSIUM DECREASED [None]
  - GENERALISED OEDEMA [None]
  - HYPOAESTHESIA [None]
  - TREMOR [None]
